FAERS Safety Report 17168828 (Version 1)
Quarter: 2019Q4

REPORT INFORMATION
  Report Type: Report from Study
  Country: US (occurrence: US)
  Receive Date: 20191218
  Receipt Date: 20191218
  Transmission Date: 20200122
  Serious: Yes (Death)
  Sender: FDA-Public Use
  Company Number: US-ROCHE-2489096

PATIENT
  Age: 85 Year
  Sex: Female

DRUGS (1)
  1. LUCENTIS [Suspect]
     Active Substance: RANIBIZUMAB
     Indication: PRODUCT USED FOR UNKNOWN INDICATION
     Dosage: ENTIS LAST TREATMENT DATE: 2/21/19
     Route: 050
     Dates: start: 20161114, end: 20190221

REACTIONS (1)
  - Death [Fatal]

NARRATIVE: CASE EVENT DATE: 20190427
